FAERS Safety Report 6328032-7 (Version None)
Quarter: 2009Q3

REPORT INFORMATION
  Report Type: 
  Country: None (occurrence: None)
  Receive Date: 20090825
  Receipt Date: 20080902
  Transmission Date: 20100115
  Serious: No
  Sender: FDA-Public Use
  Company Number: US-ABBOTT-08P-163-0474896-00

PATIENT
  Sex: Male

DRUGS (2)
  1. SYNTHROID [Suspect]
     Indication: THYROID DISORDER
     Route: 048
     Dates: start: 20010101, end: 20070801
  2. SYNTHROID [Suspect]
     Route: 048
     Dates: start: 20070801

REACTIONS (2)
  - FATIGUE [None]
  - FEELING ABNORMAL [None]
